FAERS Safety Report 4826714-7 (Version None)
Quarter: 2005Q4

REPORT INFORMATION
  Report Type: 
  Country: None (occurrence: None)
  Receive Date: 20051111
  Receipt Date: 20051111
  Transmission Date: 20060501
  Serious: Yes (Hospitalization)
  Sender: FDA-Public Use
  Company Number: None

PATIENT
  Age: 51 Year
  Sex: Male
  Weight: 90.2658 kg

DRUGS (18)
  1. TRILEPTAL [Suspect]
     Indication: AFFECTIVE DISORDER
     Dosage: 600 MG BID PO
     Route: 048
     Dates: start: 20050929, end: 20051014
  2. TRILEPTAL [Suspect]
     Indication: CONVULSION
     Dosage: 600 MG BID PO
     Route: 048
     Dates: start: 20050929, end: 20051014
  3. COMBIVENT [Concomitant]
  4. GLUCOPHAGE [Concomitant]
  5. LACTULOSE [Concomitant]
  6. NOVOLIN N [Concomitant]
  7. COLACE [Concomitant]
  8. CYMBALTA [Concomitant]
  9. BENADRYL [Concomitant]
  10. PENLAC [Concomitant]
  11. EASIVENT [Concomitant]
  12. MULTI-VITAMIN [Concomitant]
  13. FOLIC ACID [Concomitant]
  14. COGENTIN [Concomitant]
  15. RISPERDAL [Concomitant]
  16. REMERON [Concomitant]
  17. THORAZINE [Concomitant]
  18. VISTARIL [Concomitant]

REACTIONS (1)
  - HYPONATRAEMIA [None]
